FAERS Safety Report 6902172-3 (Version None)
Quarter: 2010Q3

REPORT INFORMATION
  Report Type: 
  Country: None (occurrence: None)
  Receive Date: 20100803
  Receipt Date: 20100729
  Transmission Date: 20110219
  Serious: Yes (Life-Threatening)
  Sender: FDA-Public Use
  Company Number: US-MERCK-1007USA03357

PATIENT
  Age: 57 Year
  Sex: Female

DRUGS (1)
  1. SINGULAIR [Suspect]
     Indication: SEASONAL ALLERGY
     Route: 048
     Dates: start: 20100101, end: 20100701

REACTIONS (11)
  - ANAPHYLACTIC REACTION [None]
  - ASTHENIA [None]
  - BLOOD PRESSURE DECREASED [None]
  - BLOOD TRIGLYCERIDES INCREASED [None]
  - COUGH [None]
  - FALL [None]
  - IMMUNE SYSTEM DISORDER [None]
  - LOW DENSITY LIPOPROTEIN INCREASED [None]
  - MUSCLE SPASMS [None]
  - PRURITUS GENERALISED [None]
  - RASH MACULAR [None]
